FAERS Safety Report 7907171-0 (Version None)
Quarter: 2011Q4

REPORT INFORMATION
  Report Type: 
  Country: None (occurrence: None)
  Receive Date: 20111110
  Receipt Date: 20111103
  Transmission Date: 20120403
  Serious: Yes (Other)
  Sender: FDA-Public Use
  Company Number: US-BAYER-2011-107673

PATIENT

DRUGS (1)
  1. ALKA-SELTZER ORIGINAL [Suspect]
     Dosage: THE CONSUMER CHEWED ALKA SELTZER WITHOUT WATER.
     Route: 048

REACTIONS (2)
  - CHROMATURIA [None]
  - HALLUCINATION, VISUAL [None]
